FAERS Safety Report 13411633 (Version 3)
Quarter: 2021Q2

REPORT INFORMATION
  Report Type: Spontaneous
  Country: US (occurrence: US)
  Receive Date: 20170406
  Receipt Date: 20210529
  Transmission Date: 20210716
  Serious: No
  Sender: FDA-Public Use
  Company Number: US-JNJFOC-20170303017

PATIENT
  Sex: Male

DRUGS (3)
  1. RISPERIDONE. [Suspect]
     Active Substance: RISPERIDONE
     Indication: PRODUCT USED FOR UNKNOWN INDICATION
     Route: 048
  2. RISPERDAL [Suspect]
     Active Substance: RISPERIDONE
     Indication: PRODUCT USED FOR UNKNOWN INDICATION
     Route: 048
     Dates: start: 20020826
  3. RISPERDAL [Suspect]
     Active Substance: RISPERIDONE
     Route: 048
     Dates: start: 20020923, end: 20090804

REACTIONS (3)
  - Gynaecomastia [Unknown]
  - Emotional disorder [Unknown]
  - Weight increased [Unknown]
